FAERS Safety Report 10735986 (Version 2)
Quarter: 2015Q1

REPORT INFORMATION
  Report Type: Spontaneous
  Country: US (occurrence: US)
  Receive Date: 20150126
  Receipt Date: 20150226
  Transmission Date: 20150721
  Serious: No
  Sender: FDA-Public Use
  Company Number: US-BIOGENIDEC-2015BI008563

PATIENT
  Age: 62 Year
  Sex: Female

DRUGS (2)
  1. TECFIDERA [Suspect]
     Active Substance: DIMETHYL FUMARATE
     Indication: MULTIPLE SCLEROSIS
  2. TECFIDERA [Suspect]
     Active Substance: DIMETHYL FUMARATE
     Indication: MULTIPLE SCLEROSIS
     Dates: start: 201412

REACTIONS (9)
  - Memory impairment [Not Recovered/Not Resolved]
  - Pruritus [Unknown]
  - Fall [Recovered/Resolved]
  - Arthritis [Unknown]
  - Nausea [Unknown]
  - Insomnia [Unknown]
  - Gastric disorder [Unknown]
  - Headache [Unknown]
  - Formication [Unknown]

NARRATIVE: CASE EVENT DATE: 201501
